FAERS Safety Report 12206899 (Version 1)
Quarter: 2016Q1

REPORT INFORMATION
  Report Type: Spontaneous
  Country: US (occurrence: None)
  Receive Date: 20160323
  Receipt Date: 20160323
  Transmission Date: 20160526
  Serious: Yes (Disabling)
  Sender: FDA-Public Use
  Company Number: None

PATIENT
  Age: 17 Year
  Sex: Male
  Weight: 56.7 kg

DRUGS (5)
  1. CREST PRO-HEALTH CLINICAL [Suspect]
     Active Substance: CETYLPYRIDINIUM CHLORIDE
     Indication: DENTAL DISORDER PROPHYLAXIS
     Dosage: 1 USE
  2. CONCERTA [Concomitant]
     Active Substance: METHYLPHENIDATE HYDROCHLORIDE
  3. PROZAC [Concomitant]
     Active Substance: FLUOXETINE HYDROCHLORIDE
  4. NALTREXONE [Concomitant]
     Active Substance: NALTREXONE
  5. A DAILY MULTIVITAMIN WITH SAFE FILLER [Concomitant]

REACTIONS (5)
  - Glossitis [None]
  - Ageusia [None]
  - Tongue dry [None]
  - Oral discomfort [None]
  - Dry mouth [None]

NARRATIVE: CASE EVENT DATE: 20160320
